FAERS Safety Report 8989036 (Version 1)
Quarter: 2012Q4

REPORT INFORMATION
  Report Type: Spontaneous
  Country: US (occurrence: None)
  Receive Date: 20121224
  Receipt Date: 20121224
  Transmission Date: 20130627
  Serious: No
  Sender: FDA-Public Use
  Company Number: None

PATIENT
  Age: 55 Year
  Sex: Female
  Weight: 58.06 kg

DRUGS (1)
  1. LEVOFLOXACIN [Suspect]
     Dosage: 500 mg tablet  once daily po
     Route: 048
     Dates: start: 20121219, end: 20121219

REACTIONS (3)
  - Heart rate increased [None]
  - Hyperhidrosis [None]
  - Nausea [None]
